FAERS Safety Report 20095152 (Version 1)
Quarter: 2021Q4

REPORT INFORMATION
  Report Type: Spontaneous
  Country: US (occurrence: None)
  Receive Date: 20211122
  Receipt Date: 20211122
  Transmission Date: 20220303
  Serious: No
  Sender: FDA-Public Use
  Company Number: US-ALVOGEN-2021-ALVOGEN-117108

PATIENT
  Age: 68 Year
  Sex: Female

DRUGS (4)
  1. LISINOPRIL [Suspect]
     Active Substance: LISINOPRIL
     Indication: Blood pressure management
     Dates: start: 202103, end: 20210325
  2. PRAZOSIN [Concomitant]
     Active Substance: PRAZOSIN
     Indication: Blood pressure management
     Dosage: DAILY
     Route: 048
     Dates: start: 20210331
  3. LEVOTHYROXINE [Concomitant]
     Active Substance: LEVOTHYROXINE
     Indication: Thyroiditis
     Route: 048
     Dates: start: 2001
  4. LEVOTHYROXINE [Concomitant]
     Active Substance: LEVOTHYROXINE
     Indication: Thyroiditis

REACTIONS (3)
  - Glomerular filtration rate decreased [Recovered/Resolved]
  - Hypertension [Unknown]
  - Dysuria [Recovered/Resolved]
